FAERS Safety Report 19923670 (Version 1)
Quarter: 2021Q4

REPORT INFORMATION
  Report Type: Spontaneous
  Country: US (occurrence: US)
  Receive Date: 20211005
  Receipt Date: 20211005
  Transmission Date: 20220303
  Serious: Yes (Other)
  Sender: FDA-Public Use
  Company Number: US-SAGENT PHARMACEUTICALS-2021SAG002192

PATIENT
  Age: 32 Year
  Sex: Male

DRUGS (4)
  1. DOXORUBICIN HYDROCHLORIDE [Suspect]
     Active Substance: DOXORUBICIN HYDROCHLORIDE
     Indication: Blastic plasmacytoid dendritic cell neoplasia
     Dosage: 50 MG/M2, ONCE (4 CYCLES)
     Route: 042
  2. CYCLOPHOSPHAMIDE [Suspect]
     Active Substance: CYCLOPHOSPHAMIDE
     Indication: Blastic plasmacytoid dendritic cell neoplasia
     Dosage: 750 MG/M2, ONCE (4 CYCLES)
     Route: 042
  3. VINCRISTINE [Suspect]
     Active Substance: VINCRISTINE
     Indication: Blastic plasmacytoid dendritic cell neoplasia
     Dosage: 1.4 MG/M? [CAPPED AT 2 MG], ONCE, 4 CYCLES
     Route: 042
  4. PREDNISONE [Suspect]
     Active Substance: PREDNISONE
     Indication: Blastic plasmacytoid dendritic cell neoplasia
     Dosage: 100 MG, QD FOR 5 DAYS
     Route: 048

REACTIONS (2)
  - Disseminated intravascular coagulation [Unknown]
  - Tumour lysis syndrome [Unknown]
